FAERS Safety Report 22666780 (Version 2)
Quarter: 2023Q4

REPORT INFORMATION
  Report Type: Report from Study
  Country: US (occurrence: US)
  Receive Date: 20230703
  Receipt Date: 20231015
  Transmission Date: 20240110
  Serious: Yes (Other)
  Sender: FDA-Public Use
  Company Number: US-ABBVIE-5289380

PATIENT
  Age: 58 Year
  Sex: Female

DRUGS (1)
  1. SKYRIZI [Suspect]
     Active Substance: RISANKIZUMAB-RZAA
     Indication: Psoriasis
     Route: 058
     Dates: start: 20221216

REACTIONS (4)
  - Wrist fracture [Unknown]
  - Upper limb fracture [Recovering/Resolving]
  - Road traffic accident [Unknown]
  - Multiple fractures [Unknown]

NARRATIVE: CASE EVENT DATE: 20230501
